FAERS Safety Report 4445947-5 (Version None)
Quarter: 2004Q3

REPORT INFORMATION
  Report Type: 
  Country: None (occurrence: None)
  Receive Date: 20040903
  Receipt Date: 20040819
  Transmission Date: 20050211
  Serious: Yes (Hospitalization)
  Sender: FDA-Public Use
  Company Number: 04P-163-0271032-00

PATIENT
  Age: 79 Year
  Sex: Male

DRUGS (14)
  1. HUMIRA [Suspect]
     Indication: RHEUMATOID ARTHRITIS
     Dosage: SEE IMAGE
     Route: 058
     Dates: start: 20030801, end: 20040401
  2. HUMIRA [Suspect]
     Indication: RHEUMATOID ARTHRITIS
     Dosage: SEE IMAGE
     Route: 058
     Dates: start: 20040401, end: 20040801
  3. GABAPENTIN [Concomitant]
  4. FOLIC ACID [Concomitant]
  5. ACETYLSALICYLIC ACID [Concomitant]
  6. OMEPRAZOLE [Concomitant]
  7. FINASTERIDE [Concomitant]
  8. TRAZODONE [Concomitant]
  9. RISEDRONATE SODIUM [Concomitant]
  10. CYANOCOBALAMIN [Concomitant]
  11. PYRIDOXINE HYDROCHLORIDE [Concomitant]
  12. FISH OIL [Concomitant]
  13. DARVOCET [Concomitant]
  14. DITILOPRAM [Concomitant]

REACTIONS (5)
  - CONFUSIONAL STATE [None]
  - INFLAMMATION [None]
  - JOINT SWELLING [None]
  - PURULENCE [None]
  - SEPSIS [None]
